FAERS Safety Report 6815352-2 (Version None)
Quarter: 2010Q3

REPORT INFORMATION
  Report Type: 
  Country: None (occurrence: None)
  Receive Date: 20100702
  Receipt Date: 20100623
  Transmission Date: 20110219
  Serious: Yes (Hospitalization)
  Sender: FDA-Public Use
  Company Number: DE-ELI_LILLY_AND_COMPANY-DE200902000068

PATIENT
  Age: 64 Year
  Sex: Female
  Weight: 87.7 kg

DRUGS (11)
  1. BYETTA [Suspect]
     Indication: TYPE 2 DIABETES MELLITUS
     Dosage: 5 UG, 2 SEPERATE DOSES
     Route: 058
     Dates: start: 20081006, end: 20081014
  2. ASPIRIN [Concomitant]
     Indication: CORONARY ARTERY DISEASE
     Dosage: 100 MG, DAILY (1/D)
     Route: 048
     Dates: start: 20070101
  3. BISOPROLOL FUMARATE [Concomitant]
     Indication: HYPERTENSION
     Dosage: 5 MG, DAILY (1/D)
     Route: 048
     Dates: start: 20040101
  4. IBU NOVALGINA [Concomitant]
     Indication: PAIN
     Dosage: 500 MG, 3/D
     Route: 048
     Dates: start: 20081008
  5. LANTUS [Concomitant]
     Indication: TYPE 2 DIABETES MELLITUS
     Dosage: 20 IU, DAILY (1/D)
     Route: 058
     Dates: start: 20071201, end: 20081016
  6. NOVONORM [Concomitant]
     Indication: TYPE 2 DIABETES MELLITUS
     Dosage: 0.5 MG, DAILY (1/D)
     Route: 048
     Dates: start: 20081013
  7. RAMIPRIL [Concomitant]
     Indication: HYPERTENSION
     Dosage: 2.5 MG, DAILY (1/D)
     Route: 048
     Dates: start: 20040101
  8. THIOCTACID [Concomitant]
     Indication: DIABETIC NEUROPATHY
     Dosage: 600 MG, DAILY (1/D)
     Route: 042
     Dates: start: 20081006, end: 20081015
  9. AMPICILLIN AND SULBACTAM [Concomitant]
     Indication: FURUNCLE
     Dosage: 750 D/F, 2/D
     Route: 042
     Dates: start: 20081011, end: 20081017
  10. TOREM [Concomitant]
     Indication: HYPERTENSION
     Dosage: 50 MG, DAILY (1/D)
     Route: 048
     Dates: start: 20070101, end: 20081014
  11. XIPAMIDE [Concomitant]
     Indication: HYPERTENSION
     Dosage: 30 MG, DAILY (1/D)
     Route: 048
     Dates: start: 20070101, end: 20081014

REACTIONS (1)
  - RENAL FAILURE [None]
